FAERS Safety Report 9802962 (Version 1)
Quarter: 2014Q1

REPORT INFORMATION
  Report Type: Spontaneous
  Country: US (occurrence: None)
  Receive Date: 20140106
  Receipt Date: 20140106
  Transmission Date: 20141002
  Serious: Yes (Disabling)
  Sender: FDA-Public Use
  Company Number: None

PATIENT
  Age: 34 Year
  Sex: Female
  Weight: 87.54 kg

DRUGS (2)
  1. HYDROXYPROGESTERONE [Suspect]
     Indication: PROPHYLAXIS
     Route: 030
     Dates: start: 20131017
  2. HYDROXYPROGESTERONE [Suspect]
     Indication: PREMATURE LABOUR
     Route: 030
     Dates: start: 20131017

REACTIONS (2)
  - Gestational diabetes [None]
  - Exposure during pregnancy [None]
